FAERS Safety Report 25490002 (Version 3)
Quarter: 2025Q4

REPORT INFORMATION
  Report Type: Report from Study
  Country: CA (occurrence: CA)
  Receive Date: 20250628
  Receipt Date: 20251103
  Transmission Date: 20260118
  Serious: Yes (Other)
  Sender: CELLTRION
  Company Number: CA-CELLTRION INC.-2024CA028022

PATIENT

DRUGS (1)
  1. INFLIXIMAB-DYYB [Suspect]
     Active Substance: INFLIXIMAB-DYYB
     Indication: Crohn^s disease
     Dosage: 120 MILLIGRAM, Q 2 WEEKS (REMSIMA 120MG SC Q 2 WEEKS), 1 EVERY 2 WEEKS
     Route: 058
     Dates: start: 20240802

REACTIONS (3)
  - Unevaluable event [Recovering/Resolving]
  - COVID-19 [Recovering/Resolving]
  - Ill-defined disorder [Unknown]

NARRATIVE: CASE EVENT DATE: 20250101
